FAERS Safety Report 5958178-4 (Version None)
Quarter: 2008Q4

REPORT INFORMATION
  Report Type: 
  Country: None (occurrence: None)
  Receive Date: 20081117
  Receipt Date: 20081117
  Transmission Date: 20090506
  Serious: No
  Sender: FDA-Public Use
  Company Number: None

PATIENT
  Age: 48 Year
  Sex: Female
  Weight: 99.7913 kg

DRUGS (2)
  1. ALKA SELTZER COLD PLUS [Suspect]
     Dosage: 2 TABLETS 4 TIMES DAILY PO
     Route: 048
     Dates: start: 20081106, end: 20081112
  2. ALKA SELTZER COLD PLUS NITE TIME [Suspect]
     Dosage: 2 TABLETS 1 TIME NIGHTLY PO
     Route: 048
     Dates: start: 20081106, end: 20081112

REACTIONS (2)
  - NERVOUSNESS [None]
  - TREMOR [None]
